FAERS Safety Report 5569137-8 (Version None)
Quarter: 2007Q4

REPORT INFORMATION
  Report Type: 
  Country: None (occurrence: None)
  Receive Date: 20071220
  Receipt Date: 20070731
  Transmission Date: 20080405
  Serious: No
  Sender: FDA-Public Use
  Company Number: A0667325A

PATIENT
  Age: 81 Year
  Sex: Male

DRUGS (7)
  1. AVODART [Suspect]
     Indication: BENIGN PROSTATIC HYPERPLASIA
     Dosage: 1CAP PER DAY
     Route: 048
     Dates: start: 20070712, end: 20070726
  2. COUMADIN [Concomitant]
  3. TOPROL-XL [Concomitant]
  4. LIPITOR [Concomitant]
  5. WELLBUTRIN [Concomitant]
  6. LISINOPRIL [Concomitant]
  7. CARDURA [Concomitant]

REACTIONS (1)
  - RASH [None]
